APPROVED DRUG PRODUCT: MAVYRET
Active Ingredient: GLECAPREVIR; PIBRENTASVIR
Strength: 100MG;40MG
Dosage Form/Route: TABLET;ORAL
Application: N209394 | Product #001
Applicant: ABBVIE INC
Approved: Aug 3, 2017 | RLD: Yes | RS: Yes | Type: RX

PATENTS:
Patent 10039754 | Expires: Jun 10, 2030
Patent 8648037 | Expires: Jan 19, 2032
Patent 11484534 | Expires: Mar 14, 2034
Patent 10286029 | Expires: Mar 14, 2034
Patent 10028937 | Expires: Jun 10, 2030
Patent 10039754 | Expires: Jun 10, 2030
Patent 9586978 | Expires: Nov 6, 2030
Patent 8648037 | Expires: Jan 19, 2032
Patent 9586978 | Expires: Nov 6, 2030
Patent 10028937 | Expires: Jun 10, 2030
Patent 9586978 | Expires: Nov 6, 2030
Patent 8648037 | Expires: Jan 19, 2032
Patent 11484534 | Expires: Mar 14, 2034
Patent 10028937 | Expires: Jun 10, 2030
Patent 10286029 | Expires: Mar 14, 2034
Patent 10039754 | Expires: Jun 10, 2030
Patent 11246866 | Expires: Jun 24, 2036
Patent 8937150 | Expires: May 18, 2032
Patent RE48923 | Expires: May 8, 2035
Patent 9321807 | Expires: Jun 5, 2035
Patent 10028937*PED | Expires: Dec 10, 2030
Patent 8648037*PED | Expires: Jul 19, 2032
Patent 8937150*PED | Expires: Nov 18, 2032
Patent 9586978*PED | Expires: May 6, 2031
Patent 9321807*PED | Expires: Dec 5, 2035
Patent 10039754*PED | Expires: Dec 10, 2030
Patent 11246866*PED | Expires: Dec 24, 2036
Patent 10286029*PED | Expires: Sep 14, 2034
Patent 11484534*PED | Expires: Sep 14, 2034
Patent RE48923*PED | Expires: Nov 8, 2035

EXCLUSIVITY:
Code: I-967 | Date: Jun 10, 2028
Code: ODE-232 | Date: Apr 30, 2026
Code: ODE-233 | Date: Apr 30, 2026
Code: ODE-372 | Date: Jun 10, 2028
Code: PED | Date: Oct 30, 2026
Code: PED | Date: Oct 30, 2026
Code: PED | Date: Dec 10, 2028